FAERS Safety Report 7978797-3 (Version None)
Quarter: 2011Q4

REPORT INFORMATION
  Report Type: 
  Country: None (occurrence: None)
  Receive Date: 20111214
  Receipt Date: 20111208
  Transmission Date: 20120403
  Serious: No
  Sender: FDA-Public Use
  Company Number: US-BAYER-2011-119443

PATIENT
  Age: 70 Year
  Sex: Female
  Weight: 104 kg

DRUGS (3)
  1. ALEVE (CAPLET) [Suspect]
     Indication: ARTHRITIS
     Dosage: 1 DF, BID
     Dates: start: 20100101
  2. ASPIRIN [Concomitant]
  3. TENORMIN [Concomitant]

REACTIONS (3)
  - HYPERVIGILANCE [None]
  - NO ADVERSE EVENT [None]
  - PARAESTHESIA [None]
